FAERS Safety Report 11753087 (Version 1)
Quarter: 2015Q4

REPORT INFORMATION
  Report Type: Spontaneous
  Country: US (occurrence: None)
  Receive Date: 20151118
  Receipt Date: 20151118
  Transmission Date: 20160304
  Serious: Yes (Life-Threatening, Hospitalization)
  Sender: FDA-Public Use
  Company Number: None

PATIENT
  Age: 69 Year
  Sex: Male
  Weight: 82.1 kg

DRUGS (2)
  1. OSELTAMIVIR [Suspect]
     Active Substance: OSELTAMIVIR
     Indication: SEPSIS
     Route: 048
     Dates: start: 20151016, end: 20151022
  2. OSELTAMIVIR [Suspect]
     Active Substance: OSELTAMIVIR
     Indication: PNEUMONIA
     Route: 048
     Dates: start: 20151016, end: 20151022

REACTIONS (12)
  - Asthenia [None]
  - Presyncope [None]
  - Rash erythematous [None]
  - Thrombocytopenia [None]
  - Urticaria [None]
  - Blood pressure decreased [None]
  - Rash generalised [None]
  - Dizziness postural [None]
  - Autoimmune disorder [None]
  - Pruritus [None]
  - Heart rate increased [None]
  - Pneumonia [None]

NARRATIVE: CASE EVENT DATE: 20151018
